FAERS Safety Report 8437101-7 (Version None)
Quarter: 2012Q2

REPORT INFORMATION
  Report Type: 
  Country: None (occurrence: None)
  Receive Date: 20120614
  Receipt Date: 20120608
  Transmission Date: 20120825
  Serious: Yes (Hospitalization)
  Sender: FDA-Public Use
  Company Number: US-PFIZER INC-2012139266

PATIENT
  Sex: Male

DRUGS (10)
  1. VALSARTAN [Suspect]
  2. BLINDED THERAPY [Suspect]
  3. ALDACTONE [Suspect]
  4. ACETYLSALICYLIC ACID [Concomitant]
  5. NOVOLIN R [Suspect]
     Indication: TYPE 2 DIABETES MELLITUS
     Dosage: 100 IU, UNK
  6. NICOTINIC ACID [Concomitant]
  7. TERAZOSIN HCL [Suspect]
     Dosage: UNK
     Dates: start: 20120330, end: 20120406
  8. HUMALOG [Suspect]
     Indication: TYPE 2 DIABETES MELLITUS
     Dosage: 500 IU, UNK
  9. INSULIN GLARGINE [Suspect]
     Indication: TYPE 2 DIABETES MELLITUS
     Dosage: 100 IU, UNK
  10. INSULIN ASPART [Suspect]
     Indication: TYPE 2 DIABETES MELLITUS
     Dosage: 100 IU, UNK

REACTIONS (3)
  - HYPERKALAEMIA [None]
  - INFECTIVE EXACERBATION OF CHRONIC OBSTRUCTIVE AIRWAYS DISEASE [None]
  - SYNCOPE [None]
